FAERS Safety Report 21603284 (Version 2)
Quarter: 2022Q4

REPORT INFORMATION
  Report Type: Spontaneous
  Country: US (occurrence: US)
  Receive Date: 20221116
  Receipt Date: 20221227
  Transmission Date: 20230113
  Serious: No
  Sender: FDA-Public Use
  Company Number: US-PFIZER INC-202201300455

PATIENT
  Age: 65 Year
  Sex: Male
  Weight: 96.16 kg

DRUGS (15)
  1. CAVERJECT [Suspect]
     Active Substance: ALPROSTADIL
     Indication: Erectile dysfunction
     Dosage: UNK
     Dates: start: 2019
  2. CAVERJECT [Suspect]
     Active Substance: ALPROSTADIL
     Indication: Prostate cancer
     Dosage: ONE 40MCG BOTTLE MIXED WITH WATER MAKES 1ML WHEN IN SYRINGE, INJECT INTO THE LOWER 3RD SIDE OF PENIS
     Dates: start: 20221113
  3. CAVERJECT [Suspect]
     Active Substance: ALPROSTADIL
     Indication: Prostatic operation
  4. CYMBALTA [Concomitant]
     Active Substance: DULOXETINE HYDROCHLORIDE
     Indication: Depression
     Dosage: 50 MG, 1X/DAY
     Route: 048
  5. CYMBALTA [Concomitant]
     Active Substance: DULOXETINE HYDROCHLORIDE
     Indication: Pain
  6. PROZAC [Concomitant]
     Active Substance: FLUOXETINE HYDROCHLORIDE
     Indication: Depression
     Dosage: 40 MG, 1X/DAY (ONCE IN THE MORNING)
     Route: 048
  7. LISINOPRIL [Concomitant]
     Active Substance: LISINOPRIL
     Indication: Hypertension
     Dosage: 10 MG, 1X/DAY (ONCE DAILY IN MORNING BY MOUTH)
     Route: 048
  8. SOLIFENACIN [Concomitant]
     Active Substance: SOLIFENACIN
     Indication: Urinary incontinence
     Dosage: 10 MG, 1X/DAY
     Route: 048
  9. SIMVASTATIN [Concomitant]
     Active Substance: SIMVASTATIN
     Indication: Blood cholesterol increased
     Dosage: 20 MG, 1X/DAY (IN EVENING)
     Route: 048
  10. REXULTI [Concomitant]
     Active Substance: BREXPIPRAZOLE
     Indication: Depression
     Dosage: 2 MG, 1X/DAY
     Route: 048
  11. TRAZODONE [Concomitant]
     Active Substance: TRAZODONE HYDROCHLORIDE
     Indication: Sleep disorder
     Dosage: 100 MG, 1X/DAY (ONCE AT NIGHT)
     Route: 048
  12. CETIRIZINE [Concomitant]
     Active Substance: CETIRIZINE HYDROCHLORIDE
     Indication: Nasal congestion
     Dosage: 10 MG, 1X/DAY
     Route: 048
  13. FLUTICASONE PROPIONATE [Concomitant]
     Active Substance: FLUTICASONE PROPIONATE
     Indication: Nasal congestion
     Dosage: 50 UG, AS NEEDED (ONCE OR TWICE A DAY AS NEEDED, 2 SPRAYS EACH NOSTRIL )
     Route: 045
  14. ALBUTEROL [Concomitant]
     Active Substance: ALBUTEROL
     Indication: Cough
     Dosage: 90 UG, AS NEEDED (INHALER, TWO INHALATIONS AS NEEDED TWICE A DAY)
  15. TESTOSTERONE [Concomitant]
     Active Substance: TESTOSTERONE
     Indication: Blood testosterone abnormal
     Dosage: UNK, (SHOT EVERY 2 WEEKS; DOSE UNKNOWN)

REACTIONS (2)
  - Drug ineffective [Unknown]
  - Penile pain [Unknown]

NARRATIVE: CASE EVENT DATE: 20221113
